FAERS Safety Report 13296951 (Version 1)
Quarter: 2017Q1

REPORT INFORMATION
  Report Type: Spontaneous
  Country: US (occurrence: US)
  Receive Date: 20170306
  Receipt Date: 20170306
  Transmission Date: 20170428
  Serious: No
  Sender: FDA-Public Use
  Company Number: US-TEVA-719745ACC

PATIENT
  Sex: Female

DRUGS (1)
  1. LORATADINE 10 MG-PSEUDOEPHEDRINE SULFATE 240 MG ER 165 [Suspect]
     Active Substance: LORATADINE\PSEUDOEPHEDRINE SULFATE
     Indication: MIDDLE EAR EFFUSION
     Dosage: LORATADINE/PSEUDOEPHEDRINE SULFATE : 10/240 MG
     Route: 048
     Dates: start: 2016

REACTIONS (2)
  - Constipation [Unknown]
  - Off label use [Unknown]

NARRATIVE: CASE EVENT DATE: 2016
